FAERS Safety Report 6479775-6 (Version None)
Quarter: 2009Q4

REPORT INFORMATION
  Report Type: 
  Country: None (occurrence: None)
  Receive Date: 20091208
  Receipt Date: 20091127
  Transmission Date: 20100525
  Serious: Yes (Hospitalization)
  Sender: FDA-Public Use
  Company Number: PHHY2009ZA53229

PATIENT
  Sex: Female

DRUGS (4)
  1. TAREG [Suspect]
     Dosage: 160 MG, UNK
     Route: 048
  2. ADALAT CC [Concomitant]
     Indication: HYPERTENSION
     Dosage: 30 MG, UNK
  3. TAMOXIFEN CITRATE [Concomitant]
     Indication: BREAST CANCER
     Dosage: 20 MG, UNK
     Dates: start: 20080801
  4. MELOXICAM [Concomitant]
     Indication: ARTHRITIS

REACTIONS (2)
  - HYPERTENSION [None]
  - MASTECTOMY [None]
